FAERS Safety Report 7917167-0 (Version None)
Quarter: 2011Q4

REPORT INFORMATION
  Report Type: 
  Country: None (occurrence: None)
  Receive Date: 20111116
  Receipt Date: 20041115
  Transmission Date: 20120403
  Serious: No
  Sender: FDA-Public Use
  Company Number: US-ENDO PHARMACEUTICALS INC.-AMIT20110049

PATIENT
  Age: 44 Year
  Sex: Male

DRUGS (2)
  1. AMITRIPTYLINE HCL [Suspect]
     Indication: PAIN
     Route: 048
     Dates: start: 20020911, end: 20021007
  2. LEVAQUIN [Suspect]

REACTIONS (4)
  - SUICIDAL BEHAVIOUR [None]
  - HEPATIC FUNCTION ABNORMAL [None]
  - PSYCHOTIC DISORDER [None]
  - PHYSICAL ASSAULT [None]
